FAERS Safety Report 8485185-2 (Version None)
Quarter: 2012Q2

REPORT INFORMATION
  Report Type: 
  Country: None (occurrence: None)
  Receive Date: 20120625
  Receipt Date: 20120612
  Transmission Date: 20120825
  Serious: Yes (Disabling, Other)
  Sender: FDA-Public Use
  Company Number: ACO_30734_2012

PATIENT
  Age: 64 Year
  Sex: Male

DRUGS (2)
  1. AMPYRA [Suspect]
     Indication: PRODUCT USED FOR UNKNOWN INDICATION
     Dosage: 10 MG, BID
     Dates: start: 20111201
  2. GILENYA [Concomitant]

REACTIONS (5)
  - BACK PAIN [None]
  - VISION BLURRED [None]
  - COUGH [None]
  - HYPERTENSION [None]
  - VISUAL FIELD DEFECT [None]
